FAERS Safety Report 8040939-1 (Version None)
Quarter: 2012Q1

REPORT INFORMATION
  Report Type: 
  Country: None (occurrence: None)
  Receive Date: 20120112
  Receipt Date: 20120104
  Transmission Date: 20120608
  Serious: No
  Sender: FDA-Public Use
  Company Number: US-BIOGENIDEC-2012BI000443

PATIENT
  Sex: Male

DRUGS (2)
  1. TYSABRI [Suspect]
     Indication: MULTIPLE SCLEROSIS
     Route: 042
     Dates: start: 20111219
  2. TYSABRI [Suspect]
     Route: 042
     Dates: start: 20101207, end: 20110913

REACTIONS (2)
  - NASOPHARYNGITIS [None]
  - MUSCULOSKELETAL DISORDER [None]
